FAERS Safety Report 7767847-5 (Version None)
Quarter: 2011Q3

REPORT INFORMATION
  Report Type: 
  Country: None (occurrence: None)
  Receive Date: 20110922
  Receipt Date: 20101213
  Transmission Date: 20111222
  Serious: Yes (Other)
  Sender: FDA-Public Use
  Company Number: US-ASTRAZENECA-2007UW21670

PATIENT
  Age: 555 Month
  Sex: Female
  Weight: 125.2 kg

DRUGS (25)
  1. SEROQUEL [Suspect]
     Dosage: 100-300 MG
     Route: 048
     Dates: start: 20030411
  2. LOPID [Concomitant]
     Dates: start: 20050422
  3. SEROQUEL [Suspect]
     Indication: DEPRESSION
     Dosage: 100 MG-300 MG
     Route: 048
     Dates: start: 19990101, end: 20050601
  4. SEROQUEL [Suspect]
     Dosage: 100-300 MG
     Route: 048
     Dates: start: 20030411
  5. HYDROCODONE [Concomitant]
     Route: 065
  6. RESTORIL [Concomitant]
     Route: 065
  7. SEROQUEL [Suspect]
     Indication: BIPOLAR DISORDER
     Dosage: 100 MG-300 MG
     Route: 048
     Dates: start: 19990101, end: 20050601
  8. LORAZEPAM [Concomitant]
     Route: 065
  9. RISPERDAL [Concomitant]
     Indication: BIPOLAR DISORDER
     Route: 065
     Dates: start: 20050101, end: 20070101
  10. ABILIFY [Concomitant]
     Dates: start: 20070601, end: 20070701
  11. DILTIAZEM [Concomitant]
     Dates: start: 20061010
  12. LEXAPRO [Concomitant]
     Dosage: 10 MG TO 20 MG
     Dates: start: 20061010
  13. DEPAKOTE [Concomitant]
     Dosage: 500-1500 MG
     Dates: start: 19970101
  14. FOSAMAX [Concomitant]
     Dosage: 700 MG WEEKLY
     Dates: start: 20061010
  15. LASIX [Concomitant]
     Dates: start: 20061010
  16. XANAX [Concomitant]
     Dosage: 1 MG BID PRN
     Dates: start: 20061010
  17. ZOLOFT [Concomitant]
     Route: 065
  18. AMBIEN [Concomitant]
     Route: 065
  19. XANAX [Concomitant]
     Dosage: 0.5 MG TO 1 MG
  20. ESKALITH [Concomitant]
     Route: 065
  21. RISPERDAL [Concomitant]
     Indication: DEPRESSION
     Route: 065
     Dates: start: 20050101, end: 20070101
  22. REMERON [Concomitant]
     Route: 065
  23. TEMAZEPAM [Concomitant]
     Dates: start: 20061010
  24. PROZAC [Concomitant]
     Route: 065
  25. MIGQUIN [Concomitant]
     Dosage: ONE TO TWO Q 12 PRN
     Dates: start: 20061010

REACTIONS (16)
  - SLEEP APNOEA SYNDROME [None]
  - DIABETIC COMPLICATION [None]
  - BLOOD CHOLESTEROL INCREASED [None]
  - HYPERLIPIDAEMIA [None]
  - DYSPNOEA [None]
  - SUICIDAL IDEATION [None]
  - NERVE INJURY [None]
  - PULMONARY HYPERTENSION [None]
  - BACK DISORDER [None]
  - BLOOD TRIGLYCERIDES INCREASED [None]
  - TYPE 2 DIABETES MELLITUS [None]
  - ADVERSE DRUG REACTION [None]
  - BIPOLAR DISORDER [None]
  - DIARRHOEA [None]
  - OEDEMA [None]
  - HYPERTENSION [None]
